FAERS Safety Report 7292711-8 (Version None)
Quarter: 2011Q1

REPORT INFORMATION
  Report Type: 
  Country: None (occurrence: None)
  Receive Date: 20110215
  Receipt Date: 20110204
  Transmission Date: 20110831
  Serious: Yes (Hospitalization)
  Sender: FDA-Public Use
  Company Number: US-JNJFOC-20110202059

PATIENT
  Sex: Female

DRUGS (7)
  1. CYMBALTA [Concomitant]
     Indication: OSTEOARTHRITIS
     Route: 048
  2. NEURONTIN [Concomitant]
     Indication: ARTHRALGIA
     Route: 048
  3. CELEBREX [Concomitant]
     Indication: INFLAMMATION
     Route: 048
  4. METOPROLOL TARTRATE [Concomitant]
     Indication: HYPERTENSION
     Route: 048
  5. REMICADE [Suspect]
     Indication: RHEUMATOID ARTHRITIS
     Route: 042
  6. NORCO [Concomitant]
     Indication: ARTHRALGIA
     Route: 048
  7. ZOLPIDEM [Concomitant]
     Indication: INSOMNIA
     Route: 048

REACTIONS (2)
  - EYE SWELLING [None]
  - SWELLING FACE [None]
